FAERS Safety Report 7605886-5 (Version None)
Quarter: 2011Q3

REPORT INFORMATION
  Report Type: 
  Country: None (occurrence: None)
  Receive Date: 20110713
  Receipt Date: 20110707
  Transmission Date: 20111222
  Serious: Yes (Hospitalization)
  Sender: FDA-Public Use
  Company Number: US-ELI_LILLY_AND_COMPANY-US201107002638

PATIENT
  Age: 37 Year
  Sex: Male

DRUGS (2)
  1. EFFIENT [Suspect]
     Dosage: 10 MG, UNKNOWN
     Route: 065
  2. EFFIENT [Suspect]
     Indication: ACUTE CORONARY SYNDROME
     Dosage: 60 MG, UNKNOWN
     Route: 065
     Dates: start: 20110601

REACTIONS (1)
  - DEVICE OCCLUSION [None]
